FAERS Safety Report 7556915-9 (Version None)
Quarter: 2011Q2

REPORT INFORMATION
  Report Type: 
  Country: None (occurrence: None)
  Receive Date: 20110620
  Receipt Date: 20110606
  Transmission Date: 20111010
  Serious: Yes (Hospitalization, Other)
  Sender: FDA-Public Use
  Company Number: PHHY2010US84673

PATIENT
  Sex: Male

DRUGS (1)
  1. NEORAL [Suspect]
     Dosage: 100 MG, BID
     Route: 048
     Dates: start: 20021016, end: 20101210

REACTIONS (2)
  - FALL [None]
  - CEREBRAL HAEMORRHAGE [None]
